FAERS Safety Report 13230688 (Version 1)
Quarter: 2017Q1

REPORT INFORMATION
  Report Type: Spontaneous
  Country: US (occurrence: US)
  Receive Date: 20170214
  Receipt Date: 20170214
  Transmission Date: 20170428
  Serious: No
  Sender: FDA-Public Use
  Company Number: None

PATIENT
  Age: 78 Year
  Sex: Male
  Weight: 78.75 kg

DRUGS (16)
  1. TURMERIC [Concomitant]
     Active Substance: TURMERIC
  2. VITAMIN B12 [Concomitant]
     Active Substance: CYANOCOBALAMIN
  3. CORTISONE [Suspect]
     Active Substance: CORTISONE\HYDROCORTISONE
     Indication: ARTHRALGIA
     Dosage: OTHER ROUTE:INJECTION?
     Dates: start: 20161215, end: 20161215
  4. MAGNESIUM [Concomitant]
     Active Substance: MAGNESIUM
  5. ALPRAZOLAM. [Concomitant]
     Active Substance: ALPRAZOLAM
  6. FISH OIL [Concomitant]
     Active Substance: FISH OIL
  7. FLAXSEED [Concomitant]
     Active Substance: FLAX SEED
  8. METAMUCIL [Concomitant]
     Active Substance: PLANTAGO SEED
  9. ASPIRIN. [Concomitant]
     Active Substance: ASPIRIN
  10. AVODART [Concomitant]
     Active Substance: DUTASTERIDE
  11. MULTIVITAMIN [Concomitant]
     Active Substance: VITAMINS
  12. VITAMIN C [Concomitant]
     Active Substance: ASCORBIC ACID
  13. MELATONIN [Concomitant]
     Active Substance: MELATONIN
  14. GLUCOSAMINE [Concomitant]
     Active Substance: GLUCOSAMINE
  15. VITAMIN D3 [Concomitant]
     Active Substance: CHOLECALCIFEROL
  16. B6 [Concomitant]
     Active Substance: PYRIDOXINE HYDROCHLORIDE

REACTIONS (5)
  - Injection site discolouration [None]
  - Injection site reaction [None]
  - Hypotonia [None]
  - Fatigue [None]
  - Gait disturbance [None]

NARRATIVE: CASE EVENT DATE: 20161215
